FAERS Safety Report 16395754 (Version 1)
Quarter: 2019Q2

REPORT INFORMATION
  Report Type: Spontaneous
  Country: US (occurrence: US)
  Receive Date: 20190605
  Receipt Date: 20190605
  Transmission Date: 20190711
  Serious: Yes (Life-Threatening, Hospitalization)
  Sender: FDA-Public Use
  Company Number: US-ACELLA PHARMACEUTICALS, LLC-2067826

PATIENT
  Age: 18 Year
  Sex: Male

DRUGS (7)
  1. LANSOPRAZOLE. [Concomitant]
     Active Substance: LANSOPRAZOLE
  2. BISACODYL. [Concomitant]
     Active Substance: BISACODYL
  3. PHENYTOIN SODIUM. [Suspect]
     Active Substance: PHENYTOIN SODIUM
     Indication: EPILEPSY
  4. POLYETHYLENE GLYCOL [Concomitant]
     Active Substance: POLYETHYLENE GLYCOLS
  5. ERGOCALCIFEROL. [Concomitant]
     Active Substance: ERGOCALCIFEROL
  6. METOCLOPRAMIDE. [Concomitant]
     Active Substance: METOCLOPRAMIDE
  7. POTASSIUM CHLORIDE. [Concomitant]
     Active Substance: POTASSIUM CHLORIDE

REACTIONS (10)
  - Decreased appetite [Unknown]
  - Lethargy [Unknown]
  - Tongue haemorrhage [Unknown]
  - Laboratory test abnormal [Recovering/Resolving]
  - Body temperature normal [Unknown]
  - Tachypnoea [Unknown]
  - Confusional state [Unknown]
  - Sepsis [Unknown]
  - Hypocoagulable state [Unknown]
  - Tachycardia [Unknown]
